FAERS Safety Report 15476781 (Version 2)
Quarter: 2018Q4

REPORT INFORMATION
  Report Type: Spontaneous
  Country: AR (occurrence: AR)
  Receive Date: 20181009
  Receipt Date: 20181012
  Transmission Date: 20190205
  Serious: Yes (Other)
  Sender: FDA-Public Use
  Company Number: AR-NOVOPROD-624944

PATIENT
  Age: 33 Year
  Sex: Female
  Weight: 90 kg

DRUGS (5)
  1. NOVORAPID [Suspect]
     Active Substance: INSULIN ASPART
     Indication: GESTATIONAL DIABETES
     Dosage: 23 IU, QD
     Route: 058
     Dates: start: 20180501
  2. LEVEMIR [Suspect]
     Active Substance: INSULIN DETEMIR
     Dosage: 120 IU, QD
     Route: 058
  3. LEVEMIR [Suspect]
     Active Substance: INSULIN DETEMIR
     Indication: GESTATIONAL DIABETES
     Dosage: 120 IU, QD
     Route: 058
  4. LEVEMIR [Suspect]
     Active Substance: INSULIN DETEMIR
     Dosage: 120 IU, QD
     Route: 058
  5. INSULATARD FLEXPEN [Suspect]
     Active Substance: INSULIN HUMAN
     Indication: GESTATIONAL DIABETES
     Dosage: 110 IU, QD
     Route: 058
     Dates: start: 20180718

REACTIONS (3)
  - Foetal death [Unknown]
  - Bradycardia foetal [Unknown]
  - Exposure during pregnancy [Recovered/Resolved]

NARRATIVE: CASE EVENT DATE: 20180322
